FAERS Safety Report 11403602 (Version 2)
Quarter: 2015Q4

REPORT INFORMATION
  Report Type: Spontaneous
  Country: CA (occurrence: CA)
  Receive Date: 20150821
  Receipt Date: 20151006
  Transmission Date: 20160304
  Serious: Yes (Hospitalization, Other)
  Sender: FDA-Public Use
  Company Number: CA-JNJFOC-20150810943

PATIENT
  Age: 80 Year
  Sex: Female
  Weight: 56.7 kg

DRUGS (4)
  1. TYLENOL ARTHRITIS PAIN [Suspect]
     Active Substance: ACETAMINOPHEN
     Indication: ARTHRALGIA
     Dosage: STARTED WITH 2-3 TIMES PER DAY AS RECOMMENDED BY PHARMACIST THEN HAD TO CUT BACK TO ONE PER DAY.
     Route: 048
     Dates: start: 20150714, end: 20150818
  2. VITAMIN D [Concomitant]
     Active Substance: CHOLECALCIFEROL
     Indication: VITAMIN SUPPLEMENTATION
     Route: 065
  3. VITAMIN C [Concomitant]
     Active Substance: ASCORBIC ACID
     Indication: VITAMIN SUPPLEMENTATION
     Route: 065
  4. TYLENOL ARTHRITIS PAIN [Suspect]
     Active Substance: ACETAMINOPHEN
     Indication: INFLAMMATION
     Dosage: STARTED WITH 2-3 TIMES PER DAY AS RECOMMENDED BY PHARMACIST THEN HAD TO CUT BACK TO ONE PER DAY.
     Route: 048
     Dates: start: 20150714, end: 20150818

REACTIONS (3)
  - Blood pressure decreased [Recovered/Resolved]
  - Dehydration [Unknown]
  - Palpitations [Recovered/Resolved]

NARRATIVE: CASE EVENT DATE: 20150813
